FAERS Safety Report 17246001 (Version 1)
Quarter: 2020Q1

REPORT INFORMATION
  Report Type: Report from Study
  Country: IT (occurrence: IT)
  Receive Date: 20200108
  Receipt Date: 20200108
  Transmission Date: 20200409
  Serious: Yes (Hospitalization)
  Sender: FDA-Public Use
  Company Number: IT-ACCORD-168802

PATIENT
  Age: 82 Year
  Sex: Female

DRUGS (11)
  1. CLOPIDOGREL [Suspect]
     Active Substance: CLOPIDOGREL BISULFATE
     Indication: PROPHYLAXIS
     Route: 048
  2. PANTOPRAZOLE [Concomitant]
     Active Substance: PANTOPRAZOLE
  3. CARDIOASPIRIN [Interacting]
     Active Substance: ASPIRIN
     Indication: PROPHYLAXIS
     Dosage: STRENGTH: 100 MG
     Route: 048
  4. DELTACORTENE [Concomitant]
     Active Substance: PREDNISONE
     Dosage: STRENGTH: 5 MG
  5. COTAREG [Concomitant]
     Active Substance: HYDROCHLOROTHIAZIDE\VALSARTAN
     Dosage: STRENGTH: 80 MG / 12.5 MG
  6. LENTO-KALIUM [Concomitant]
     Active Substance: POTASSIUM CHLORIDE
  7. PRADAXA [Concomitant]
     Active Substance: DABIGATRAN ETEXILATE MESYLATE
     Dosage: STRENGTH: 110 MG
  8. CORDARONE [Concomitant]
     Active Substance: AMIODARONE HYDROCHLORIDE
     Dosage: STRENGTH: 200 MG
  9. EUTIROX [Concomitant]
     Active Substance: LEVOTHYROXINE SODIUM
     Dosage: STRENGTH: 150 MICROGRAMS
  10. SEQUACOR [Concomitant]
     Active Substance: BISOPROLOL
     Dosage: STRENGTH: 2.5 MG
  11. STILNOX [Concomitant]
     Active Substance: ZOLPIDEM TARTRATE

REACTIONS (5)
  - Epistaxis [Recovering/Resolving]
  - Tachyarrhythmia [Recovering/Resolving]
  - Drug interaction [Unknown]
  - Asthenia [Recovering/Resolving]
  - Ecchymosis [Recovering/Resolving]

NARRATIVE: CASE EVENT DATE: 20191024
